FAERS Safety Report 11287527 (Version 2)
Quarter: 2015Q3

REPORT INFORMATION
  Report Type: Spontaneous
  Country: KR (occurrence: KR)
  Receive Date: 20150721
  Receipt Date: 20150803
  Transmission Date: 20151125
  Serious: Yes (Hospitalization)
  Sender: FDA-Public Use
  Company Number: PHHY2015KR085694

PATIENT
  Age: 51 Year
  Sex: Female
  Weight: 42.7 kg

DRUGS (11)
  1. AFINITOR [Suspect]
     Active Substance: EVEROLIMUS
     Indication: BREAST CANCER
     Dosage: 10 MG/T, QD
     Route: 048
     Dates: start: 20141201, end: 20150627
  2. ZEMIGLO [Concomitant]
     Indication: DIABETES MELLITUS
     Dosage: 50 MG/T, QD
     Route: 048
  3. ATORVA [Concomitant]
     Indication: HYPERLIPIDAEMIA
     Dosage: 10 MG/T, QD
     Route: 048
  4. DIAMICRON MR [Concomitant]
     Active Substance: GLICLAZIDE
     Indication: DIABETES MELLITUS
     Dosage: 60 MG/T, QD
     Route: 048
  5. AROMASIN [Suspect]
     Active Substance: EXEMESTANE
     Indication: BREAST CANCER
     Dosage: 25 MG/T, QD
     Route: 048
     Dates: start: 20141201, end: 20150627
  6. MADIPINE [Concomitant]
     Indication: HYPERTENSION
     Dosage: 10 MG/T, QD
     Route: 048
  7. DEXIDE [Concomitant]
     Indication: DIABETES MELLITUS
     Dosage: 480 MG/T, QD
     Route: 048
  8. FEROBA [Concomitant]
     Indication: IRON DEFICIENCY ANAEMIA
     Dosage: 256 MG/T, QD
     Route: 048
  9. CALTEO [Concomitant]
     Indication: PRODUCT USED FOR UNKNOWN INDICATION
     Route: 065
  10. TASNA [Concomitant]
     Indication: ANTACID THERAPY
     Dosage: 500 MG X 2, TID
     Route: 048
  11. DIAMICRON MR [Concomitant]
     Active Substance: GLICLAZIDE
     Dosage: 30 MG/T, QD
     Route: 048

REACTIONS (3)
  - Enteritis [Unknown]
  - Nephropathy toxic [Recovering/Resolving]
  - Renal tubular disorder [Unknown]

NARRATIVE: CASE EVENT DATE: 201506
